FAERS Safety Report 8362942-4 (Version None)
Quarter: 2012Q1

REPORT INFORMATION
  Report Type: 
  Country: None (occurrence: None)
  Receive Date: 20120323
  Receipt Date: 20110908
  Transmission Date: 20120608
  Serious: Yes (Other)
  Sender: FDA-Public Use
  Company Number: 163-21880-11023219

PATIENT
  Age: 81 Year
  Sex: Female
  Weight: 52.6173 kg

DRUGS (8)
  1. REVLIMID [Suspect]
     Indication: MULTIPLE MYELOMA
     Dosage: 5 MG, 3 WKS ON, 1 WK OFF, PO; 10 MG, 3 WKS ON, 1 WK OFF, PO; 15 MG, 3 WKS ON, 1 WK  OFF, PO
     Route: 048
     Dates: start: 20110601, end: 20110715
  2. REVLIMID [Suspect]
     Indication: MULTIPLE MYELOMA
     Dosage: 5 MG, 3 WKS ON, 1 WK OFF, PO; 10 MG, 3 WKS ON, 1 WK OFF, PO; 15 MG, 3 WKS ON, 1 WK  OFF, PO
     Route: 048
     Dates: start: 20110425, end: 20110601
  3. REVLIMID [Suspect]
     Indication: MULTIPLE MYELOMA
     Dosage: 5 MG, 3 WKS ON, 1 WK OFF, PO; 10 MG, 3 WKS ON, 1 WK OFF, PO; 15 MG, 3 WKS ON, 1 WK  OFF, PO
     Route: 048
     Dates: start: 20110301, end: 20110317
  4. GABAPENTIN [Concomitant]
  5. ZOMETA [Concomitant]
  6. ACETAMINOPHEN [Concomitant]
  7. DOCUSATE (DOCUSATE) [Concomitant]
  8. OMEPRAZOLE [Concomitant]

REACTIONS (8)
  - FATIGUE [None]
  - ASTHENIA [None]
  - PANCYTOPENIA [None]
  - RASH [None]
  - PRURITUS [None]
  - MULTIPLE MYELOMA [None]
  - DIARRHOEA [None]
  - NEOPLASM PROGRESSION [None]
